FAERS Safety Report 8177754-4 (Version None)
Quarter: 2012Q1

REPORT INFORMATION
  Report Type: 
  Country: None (occurrence: None)
  Receive Date: 20120301
  Receipt Date: 20120228
  Transmission Date: 20120608
  Serious: Yes (Life-Threatening, Hospitalization)
  Sender: FDA-Public Use
  Company Number: PHHY2012ES016873

PATIENT
  Age: 75 Year
  Sex: Male

DRUGS (6)
  1. NEBIVOLOL [Concomitant]
     Dosage: UNK UKN, UNK
     Dates: end: 20111021
  2. CLOPIDOGREL [Concomitant]
     Dosage: UNK UKN, UNK
     Dates: end: 20111021
  3. GABAPENTIN [Concomitant]
     Dosage: UNK UKN, UNK
     Dates: end: 20111021
  4. ISOSORBIDE MONONITRATE [Concomitant]
     Dosage: UNK UKN, UNK
     Dates: end: 20111021
  5. STALEVO 100 [Suspect]
     Indication: PARKINSON'S DISEASE
     Dosage: 300 MG, DAILY
     Route: 048
     Dates: start: 20090701, end: 20111021
  6. SIMVASTATIN [Concomitant]
     Dosage: UNK UKN, UNK
     Dates: end: 20111021

REACTIONS (4)
  - VENTRICULAR ASYSTOLE [None]
  - CARDIAC HYPERTROPHY [None]
  - VENTRICULAR EXTRASYSTOLES [None]
  - VENTRICULAR TACHYCARDIA [None]
